FAERS Safety Report 9072473 (Version 1)
Quarter: 2013Q1

REPORT INFORMATION
  Report Type: Report from Study
  Country: US (occurrence: US)
  Receive Date: 20130129
  Receipt Date: 20130129
  Transmission Date: 20140127
  Serious: No
  Sender: FDA-Public Use
  Company Number: US-ABBOTT-12P-163-0923602-00

PATIENT
  Age: 55 Year
  Sex: Female

DRUGS (3)
  1. HUMIRA 40 MG/0.8 ML PEN [Suspect]
     Indication: CROHN^S DISEASE
     Dates: start: 201201
  2. PRILOSEC [Concomitant]
     Indication: DYSPEPSIA
     Route: 048
  3. PRESTIQ [Concomitant]
     Indication: DEPRESSION
     Route: 048

REACTIONS (1)
  - Drug ineffective [Not Recovered/Not Resolved]
